FAERS Safety Report 25005899 (Version 1)
Quarter: 2025Q1

REPORT INFORMATION
  Report Type: Spontaneous
  Country: CN (occurrence: CN)
  Receive Date: 20250224
  Receipt Date: 20250224
  Transmission Date: 20250409
  Serious: Yes (Hospitalization)
  Sender: ELI LILLY AND COMPANY
  Company Number: CN-Merck Healthcare KGaA-2025007700

PATIENT
  Age: 74 Year
  Sex: Male
  Weight: 70 kg

DRUGS (4)
  1. ERBITUX [Suspect]
     Active Substance: CETUXIMAB
     Indication: Tonsil cancer
     Route: 041
     Dates: start: 20241225, end: 20241225
  2. TISLELIZUMAB [Suspect]
     Active Substance: TISLELIZUMAB
     Indication: Tonsil cancer
     Dosage: 200 MG, DAILY
     Route: 041
     Dates: start: 20241225, end: 20241225
  3. PACLITAXEL [Suspect]
     Active Substance: PACLITAXEL
     Indication: Tonsil cancer
     Dosage: 200 MG, DAILY
     Route: 041
     Dates: start: 20241225, end: 20241225
  4. CARBOPLATIN [Suspect]
     Active Substance: CARBOPLATIN
     Indication: Tonsil cancer
     Dosage: 0.4 G, DAILY
     Route: 041
     Dates: start: 20241225, end: 20241225

REACTIONS (1)
  - Platelet count decreased [Recovering/Resolving]

NARRATIVE: CASE EVENT DATE: 20250117
